FAERS Safety Report 11514454 (Version 1)
Quarter: 2015Q3

REPORT INFORMATION
  Report Type: Other
  Country: JP (occurrence: JP)
  Receive Date: 20150916
  Receipt Date: 20150916
  Transmission Date: 20151125
  Serious: Yes (Other)
  Sender: FDA-Public Use
  Company Number: JP-WARNER CHILCOTT, LLC-1042001

PATIENT
  Age: 83 Year
  Sex: Male

DRUGS (7)
  1. ACTONEL [Suspect]
     Active Substance: RISEDRONATE SODIUM
     Indication: OSTEOPOROSIS
     Route: 048
  2. LIMAPROST ALFADEX [Suspect]
     Active Substance: LIMAPROST
     Route: 048
  3. ASPRIN [Suspect]
     Active Substance: ASPIRIN
  4. ALLOPURINOL. [Suspect]
     Active Substance: ALLOPURINOL
     Route: 048
  5. GLICLAZIDE [Suspect]
     Active Substance: GLICLAZIDE
     Route: 048
  6. CANDESARTAN CILEXETIL. [Suspect]
     Active Substance: CANDESARTAN CILEXETIL
     Route: 048
  7. REBAMIPIDE [Suspect]
     Active Substance: REBAMIPIDE
     Route: 065

REACTIONS (4)
  - Renal impairment [Recovered/Resolved]
  - Tubulointerstitial nephritis [Recovered/Resolved]
  - Rash [Recovered/Resolved]
  - Eosinophilia [Recovered/Resolved]
